FAERS Safety Report 14013626 (Version 2)
Quarter: 2017Q4

REPORT INFORMATION
  Report Type: Report from Study
  Country: None (occurrence: ES)
  Receive Date: 20170926
  Receipt Date: 20171002
  Transmission Date: 20180321
  Serious: Yes (Life-Threatening, Hospitalization, Other)
  Sender: FDA-Public Use
  Company Number: ES-ABBVIE-17P-144-2107707-00

PATIENT
  Age: 60 Year
  Sex: Male
  Weight: 80 kg

DRUGS (8)
  1. ASPIRIN. [Concomitant]
     Active Substance: ASPIRIN
     Indication: ANGINA UNSTABLE
     Route: 048
     Dates: start: 20170910
  2. RAMIPRIL. [Concomitant]
     Active Substance: RAMIPRIL
     Indication: ANGINA UNSTABLE
     Route: 048
     Dates: start: 20170910
  3. PREDNISONA [Concomitant]
     Active Substance: PREDNISONE
     Indication: BONE PAIN
     Route: 048
     Dates: start: 20151115, end: 20151130
  4. HUMIRA [Suspect]
     Active Substance: ADALIMUMAB
     Indication: COLITIS ULCERATIVE
     Route: 058
     Dates: start: 20110309
  5. BISOPROLOL [Concomitant]
     Active Substance: BISOPROLOL
     Indication: ANGINA UNSTABLE
     Route: 048
     Dates: start: 20170910
  6. ATORVASTATIN [Concomitant]
     Active Substance: ATORVASTATIN
     Indication: HYPERLIPIDAEMIA
     Route: 048
     Dates: start: 20170910
  7. TICAGRELOR. [Concomitant]
     Active Substance: TICAGRELOR
     Indication: ANGINA UNSTABLE
     Route: 048
     Dates: start: 20170910
  8. TICAGRELOR. [Concomitant]
     Active Substance: TICAGRELOR
     Indication: STENT PLACEMENT

REACTIONS (1)
  - Angina unstable [Recovered/Resolved]

NARRATIVE: CASE EVENT DATE: 20170910
